FAERS Safety Report 6427083-1 (Version None)
Quarter: 2009Q4

REPORT INFORMATION
  Report Type: 
  Country: None (occurrence: None)
  Receive Date: 20091103
  Receipt Date: 20091103
  Transmission Date: 20100525
  Serious: No
  Sender: FDA-Public Use
  Company Number: None

PATIENT
  Sex: Female
  Weight: 55.97 kg

DRUGS (2)
  1. GEMCITABINE HCL [Suspect]
     Dosage: 6040 MG
  2. TARCEVA [Suspect]
     Dosage: 3600 MG

REACTIONS (1)
  - NEUTROPHIL COUNT DECREASED [None]
